FAERS Safety Report 8767853 (Version 1)
Quarter: 2012Q4

REPORT INFORMATION
  Report Type: 
  Country: GB (occurrence: GB)
  Receive Date: 20120905
  Receipt Date: 20120905
  Transmission Date: 20130627
  Serious: Yes (Hospitalization)
  Sender: FDA-Public Use
  Company Number: PHHY2012GB075813

PATIENT
  Sex: Male

DRUGS (2)
  1. OXALIPLATIN [Suspect]
     Indication: RECTAL CANCER
  2. XELODA [Suspect]
     Indication: RECTAL CANCER
     Dates: start: 20120816

REACTIONS (1)
  - Myocardial infarction [Unknown]
